FAERS Safety Report 11091712 (Version 1)
Quarter: 2015Q2

REPORT INFORMATION
  Report Type: Spontaneous
  Country: US (occurrence: US)
  Receive Date: 20150505
  Receipt Date: 20150505
  Transmission Date: 20150821
  Serious: No
  Sender: FDA-Public Use
  Company Number: US-GLAXOSMITHKLINE-US2015059139

PATIENT
  Sex: Female

DRUGS (26)
  1. SEREVENT DISKUS [Suspect]
     Active Substance: SALMETEROL XINAFOATE
     Indication: CHRONIC OBSTRUCTIVE PULMONARY DISEASE
     Dosage: 1 PUFF(S), BID
     Route: 055
  2. MAGNESIUM [Concomitant]
     Active Substance: MAGNESIUM
  3. NEXIUM [Concomitant]
     Active Substance: ESOMEPRAZOLE MAGNESIUM
  4. ORPHENADRINE [Concomitant]
     Active Substance: ORPHENADRINE
  5. ALBUTEROL + IPRATROPIUM NEBULISER SOLUTION [Concomitant]
  6. MECLIZINE [Concomitant]
     Active Substance: MECLIZINE\MECLIZINE HYDROCHLORIDE
  7. MIRALAX [Concomitant]
     Active Substance: POLYETHYLENE GLYCOL 3350
  8. OXYCODONE [Concomitant]
     Active Substance: OXYCODONE
  9. ATENOLOL. [Concomitant]
     Active Substance: ATENOLOL
  10. GABAPENTIN. [Concomitant]
     Active Substance: GABAPENTIN
  11. IRON [Concomitant]
     Active Substance: IRON
  12. VITAMIN C [Concomitant]
     Active Substance: ASCORBIC ACID
  13. SEREVENT DISKUS [Suspect]
     Active Substance: SALMETEROL XINAFOATE
     Indication: ASTHMA
  14. ASPIRIN (BABY) [Concomitant]
  15. BENZONATATE. [Concomitant]
     Active Substance: BENZONATATE
  16. CHLORCON [Concomitant]
  17. EYE HEALTH MULTIVITAMIN [Concomitant]
  18. FISH OIL [Concomitant]
     Active Substance: FISH OIL
  19. ACETAMINOPHEN + CODEINE [Concomitant]
  20. ALBUTEROL NEBULIZER [Concomitant]
     Active Substance: ALBUTEROL
  21. BIOTENE (PASTE) [Concomitant]
     Active Substance: SODIUM MONOFLUOROPHOSPHATE
  22. FAMOTIDINE. [Concomitant]
     Active Substance: FAMOTIDINE
  23. ATORVASTATIN [Concomitant]
     Active Substance: ATORVASTATIN
  24. CLARITIN [Concomitant]
     Active Substance: LORATADINE
  25. FUROSEMIDE. [Concomitant]
     Active Substance: FUROSEMIDE
  26. SPIRIVA [Concomitant]
     Active Substance: TIOTROPIUM BROMIDE MONOHYDRATE

REACTIONS (2)
  - Device use error [Unknown]
  - Medication error [Unknown]
